FAERS Safety Report 14266060 (Version 20)
Quarter: 2023Q1

REPORT INFORMATION
  Report Type: Report from Study
  Country: CN (occurrence: CN)
  Receive Date: 20171209
  Receipt Date: 20230118
  Transmission Date: 20230418
  Serious: Yes (Death, Life-Threatening, Hospitalization, Other)
  Sender: FDA-Public Use
  Company Number: CN-BRISTOL-MYERS SQUIBB COMPANY-BMS-2017-109231

PATIENT
  Sex: Male
  Weight: 62 kg

DRUGS (59)
  1. NIVOLUMAB [Suspect]
     Active Substance: NIVOLUMAB
     Indication: Non-small cell lung cancer
     Dosage: 189 MG, Q2WK
     Route: 042
     Dates: start: 20171110, end: 20171208
  2. IPILIMUMAB [Suspect]
     Active Substance: IPILIMUMAB
     Indication: Non-small cell lung cancer
     Dosage: 63 MG, UNK
     Route: 042
     Dates: start: 20171110, end: 20171110
  3. CELEBREX [Concomitant]
     Active Substance: CELECOXIB
     Indication: Product used for unknown indication
     Dosage: 0.6 G, UNK
     Dates: start: 20170625
  4. CELEBREX [Concomitant]
     Active Substance: CELECOXIB
     Dosage: 0.6 G, UNK
     Dates: start: 20171123, end: 20180108
  5. CELECOXIB [Concomitant]
     Active Substance: CELECOXIB
     Indication: Product used for unknown indication
     Dosage: 1.6 G, UNK
     Dates: start: 20170625
  6. CALAMINE [Concomitant]
     Active Substance: CALAMINE\FERRIC OXIDE RED\ZINC OXIDE
     Indication: Product used for unknown indication
     Dosage: UNK
     Dates: start: 20171113, end: 20180108
  7. LORATADINE [Concomitant]
     Active Substance: LORATADINE
     Indication: Product used for unknown indication
     Dosage: 10 MG, UNK
     Dates: start: 20171120, end: 20180108
  8. MORPHINE SULFATE [Concomitant]
     Active Substance: MORPHINE SULFATE
     Indication: Product used for unknown indication
     Dosage: 20 MG, UNK
     Dates: start: 20171123
  9. MORPHINE SULFATE [Concomitant]
     Active Substance: MORPHINE SULFATE
     Dosage: 60 MG, UNK
     Dates: start: 20171228, end: 20180105
  10. MORPHINE SULFATE [Concomitant]
     Active Substance: MORPHINE SULFATE
     Dosage: 60 MG, UNK
     Dates: start: 20180106, end: 20180108
  11. MORPHINE SULFATE [Concomitant]
     Active Substance: MORPHINE SULFATE
     Dosage: 10 MG, UNK
     Dates: start: 20180105, end: 20180105
  12. MORPHINE SULFATE [Concomitant]
     Active Substance: MORPHINE SULFATE
     Dosage: 60 UNK, UNK
     Dates: start: 20180106, end: 20180108
  13. AMBROXOL HYDROCHLORIDE [Concomitant]
     Active Substance: AMBROXOL HYDROCHLORIDE
     Indication: Product used for unknown indication
     Dosage: 15 MG, UNK
     Dates: start: 20171124, end: 20171124
  14. AMBROXOL HYDROCHLORIDE [Concomitant]
     Active Substance: AMBROXOL HYDROCHLORIDE
     Dosage: 30 MG, UNK
     Dates: start: 20171219, end: 20171230
  15. AMBROXOL HYDROCHLORIDE [Concomitant]
     Active Substance: AMBROXOL HYDROCHLORIDE
     Dosage: 60 MG, UNK
     Dates: start: 20171219, end: 20180107
  16. AMBROXOL HYDROCHLORIDE [Concomitant]
     Active Substance: AMBROXOL HYDROCHLORIDE
     Dosage: 30 MG, UNK
     Dates: start: 20171231, end: 20180104
  17. PLATYCODON GRANDIFLORUS WHOLE [Concomitant]
     Active Substance: PLATYCODON GRANDIFLORUS WHOLE
     Indication: Product used for unknown indication
     Dosage: 90 MG, UNK
     Dates: start: 20171124
  18. COMPOUND PLATYCODON [Concomitant]
     Indication: Product used for unknown indication
     Dosage: 90 MG, UNK
     Dates: start: 20171124, end: 20180108
  19. DIPROPHYLLINE AND SODIUM CHLORIDE [Concomitant]
     Indication: Product used for unknown indication
     Dosage: 0.25 G, UNK
     Dates: start: 20171220, end: 20180106
  20. DIPROPHYLLINE AND SODIUM CHLORIDE [Concomitant]
     Dosage: 0.5 UNK, UNK
     Dates: start: 20180107, end: 20180107
  21. GEFARNATE [Concomitant]
     Active Substance: GEFARNATE
     Indication: Product used for unknown indication
     Dosage: 300 MG, UNK
     Dates: start: 20171221
  22. COMPOUND GLYCYRRHIZIN              /00518801/ [Concomitant]
     Indication: Product used for unknown indication
     Dosage: 60 UNK, UNK
     Dates: start: 20171221, end: 20171230
  23. DIAZEPAM [Concomitant]
     Active Substance: DIAZEPAM
     Indication: Product used for unknown indication
     Dosage: 10 MG, UNK
     Dates: start: 20171222, end: 20171222
  24. DIAZEPAM [Concomitant]
     Active Substance: DIAZEPAM
     Dosage: 5 MG, UNK
     Dates: start: 20180105, end: 20180105
  25. ESOMEPRAZOLE SODIUM [Concomitant]
     Active Substance: ESOMEPRAZOLE SODIUM
     Indication: Product used for unknown indication
     Dosage: 40 MG, UNK
     Dates: start: 20171222, end: 20180104
  26. ESOMEPRAZOLE SODIUM [Concomitant]
     Active Substance: ESOMEPRAZOLE SODIUM
     Dosage: 80 MG, UNK
     Dates: start: 20180103, end: 20180108
  27. PIPERACILLIN AND TAZOBACTAM [Concomitant]
     Active Substance: PIPERACILLIN SODIUM\TAZOBACTAM SODIUM
     Indication: Product used for unknown indication
     Dosage: 13.5 G, UNK
     Route: 005
     Dates: start: 20171225, end: 20180103
  28. PIPERACILLIN AND TAZOBACTAM [Concomitant]
     Active Substance: PIPERACILLIN SODIUM\TAZOBACTAM SODIUM
     Dosage: 13.5 UNK, UNK
     Dates: start: 20171228, end: 20171229
  29. ALBUMIN HUMAN [Concomitant]
     Active Substance: ALBUMIN HUMAN
     Indication: Product used for unknown indication
     Dosage: 20 G, UNK
     Dates: start: 20171227, end: 20171231
  30. POTASSIUM CHLORIDE [Concomitant]
     Active Substance: POTASSIUM CHLORIDE
     Indication: Product used for unknown indication
     Dosage: 5 ML, UNK
     Dates: start: 20171227, end: 20180102
  31. POTASSIUM CHLORIDE [Concomitant]
     Active Substance: POTASSIUM CHLORIDE
     Dosage: 2 G, UNK
     Dates: start: 20171227, end: 20180101
  32. ERYTHROPOIETIN [Concomitant]
     Active Substance: ERYTHROPOIETIN
     Indication: Product used for unknown indication
     Dosage: 10000 IU, UNK
     Dates: start: 20171228, end: 20171228
  33. ERYTHROPOIETIN [Concomitant]
     Active Substance: ERYTHROPOIETIN
     Dosage: 10000 IU, UNK
     Dates: start: 20171230, end: 20180105
  34. ESTAZOLAM [Concomitant]
     Active Substance: ESTAZOLAM
     Indication: Product used for unknown indication
     Dosage: 1 MG, UNK
     Dates: start: 20171229, end: 20180105
  35. IPRATROPIUM BROMIDE [Concomitant]
     Active Substance: IPRATROPIUM BROMIDE
     Indication: Product used for unknown indication
     Dosage: 250 G, UNK
     Dates: start: 20171229, end: 20171229
  36. IPRATROPIUM BROMIDE [Concomitant]
     Active Substance: IPRATROPIUM BROMIDE
     Dosage: 500 G, UNK
     Dates: start: 20171230, end: 20180103
  37. PREDNISONE ACETATE [Concomitant]
     Active Substance: PREDNISONE ACETATE
     Indication: Product used for unknown indication
     Dosage: 15 MG, UNK
     Dates: start: 20171229, end: 20171230
  38. PREDNISONE ACETATE [Concomitant]
     Active Substance: PREDNISONE ACETATE
     Dosage: 20 MG, UNK
     Dates: start: 20171229, end: 20171230
  39. NADROPARIN CALCIUM [Concomitant]
     Active Substance: NADROPARIN CALCIUM
     Indication: Product used for unknown indication
     Dosage: 0.3 UNK, UNK
     Dates: start: 20171230, end: 20180107
  40. METHYLPREDNISOLONE SODIUM SUCCINATE [Concomitant]
     Active Substance: METHYLPREDNISOLONE SODIUM SUCCINATE
     Indication: Product used for unknown indication
     Dosage: 80 MG, UNK
     Dates: start: 20171231, end: 20180102
  41. METHYLPREDNISOLONE SODIUM SUCCINATE [Concomitant]
     Active Substance: METHYLPREDNISOLONE SODIUM SUCCINATE
     Dosage: 60 MG, UNK
     Dates: start: 20180103, end: 20180107
  42. METHYLPREDNISOLONE SODIUM SUCCINATE [Concomitant]
     Active Substance: METHYLPREDNISOLONE SODIUM SUCCINATE
     Dosage: 120 MG, UNK
     Dates: start: 20180104, end: 20180105
  43. FLUCONAZOLE W/SODIUM CHLORIDE [Concomitant]
     Indication: Product used for unknown indication
     Dosage: 0.4 G, UNK
     Dates: start: 20180102, end: 20180103
  44. FLUCONAZOLE W/SODIUM CHLORIDE [Concomitant]
     Dosage: 0.2 G, UNK
     Dates: start: 20180103, end: 20180105
  45. GABAPENTIN [Concomitant]
     Active Substance: GABAPENTIN
     Indication: Product used for unknown indication
     Dosage: 0.3 G, UNK
     Route: 005
     Dates: start: 20180102, end: 20180102
  46. GABAPENTIN [Concomitant]
     Active Substance: GABAPENTIN
     Dosage: 0.6 G, UNK
     Dates: start: 20180103, end: 20180103
  47. CASPOFUNGIN ACETATE [Concomitant]
     Active Substance: CASPOFUNGIN ACETATE
     Indication: Product used for unknown indication
     Dosage: 70 MG, UNK
     Dates: start: 20180103, end: 20180103
  48. CASPOFUNGIN ACETATE [Concomitant]
     Active Substance: CASPOFUNGIN ACETATE
     Dosage: 50 MG, UNK
     Dates: start: 20180104, end: 20180105
  49. GANCICLOVIR [Concomitant]
     Active Substance: GANCICLOVIR
     Indication: Product used for unknown indication
     Dosage: 0.3 G, UNK
     Dates: start: 20180103, end: 20180105
  50. LEVOFLOXACIN MESYLATE [Concomitant]
     Active Substance: LEVOFLOXACIN MESYLATE
     Indication: Product used for unknown indication
     Dosage: 0.4 G, UNK
     Dates: start: 20180103, end: 20180104
  51. COMPOUND AMINO ACID (14AA) [Concomitant]
     Indication: Product used for unknown indication
     Dosage: UNK
     Dates: start: 20180104, end: 20180107
  52. BACILLUS LICHENFORMIS [Concomitant]
     Indication: Product used for unknown indication
     Dosage: UNK
     Dates: start: 20180104, end: 20180104
  53. LIVE COMBINED BIFIDOBACTERIUM, LACTOBACILUS A [Concomitant]
     Indication: Product used for unknown indication
     Dosage: 0.84 G, UNK
     Route: 048
     Dates: start: 20180104, end: 20180104
  54. MEDIUM AND LONG CHAIN FAT EMULSION /07225101/ [Concomitant]
     Indication: Product used for unknown indication
     Dosage: 250 UNK, UNK
     Route: 005
     Dates: start: 20180104, end: 20180106
  55. FAT SOLUBLE VITAMIN FOR INJECTION I [Concomitant]
     Indication: Product used for unknown indication
     Dosage: 10 ML, UNK
     Dates: start: 20180104, end: 20180106
  56. VITAMINS [Concomitant]
     Active Substance: VITAMINS
     Indication: Product used for unknown indication
     Dosage: 1 DF, UNK
     Dates: start: 20180104, end: 20180107
  57. BUCINNAZINE HYDROCHLORIDE [Concomitant]
     Indication: Product used for unknown indication
     Dosage: 0.1 G, UNK
     Dates: start: 20180106, end: 20180107
  58. MUCOPOLYSACCHARIDE POLYSULFURIC ACID ESTER [Concomitant]
     Indication: Product used for unknown indication
     Dosage: UNK
     Dates: start: 20180106, end: 20180106
  59. QUETIAPINE FUMARATE [Concomitant]
     Active Substance: QUETIAPINE FUMARATE
     Indication: Product used for unknown indication
     Dosage: 25 MG, UNK
     Dates: start: 20180106, end: 20180106

REACTIONS (3)
  - Respiratory failure [Fatal]
  - Dyspnoea [Recovered/Resolved]
  - Suicide attempt [Recovered/Resolved]

NARRATIVE: CASE EVENT DATE: 20171127
